FAERS Safety Report 8193518-X (Version None)
Quarter: 2012Q1

REPORT INFORMATION
  Report Type: 
  Country: None (occurrence: None)
  Receive Date: 20120308
  Receipt Date: 20120301
  Transmission Date: 20120608
  Serious: No
  Sender: FDA-Public Use
  Company Number: CH-UCBSA-051595

PATIENT
  Sex: Female
  Weight: 65 kg

DRUGS (2)
  1. METHOTREXATE [Concomitant]
  2. CIMZIA [Suspect]
     Indication: RHEUMATOID ARTHRITIS
     Route: 058
     Dates: start: 20111101, end: 20111215

REACTIONS (1)
  - DERMATITIS ALLERGIC [None]
